FAERS Safety Report 12477725 (Version 5)
Quarter: 2016Q4

REPORT INFORMATION
  Report Type: Report from Study
  Country: CA (occurrence: CA)
  Receive Date: 20160617
  Receipt Date: 20161107
  Transmission Date: 20170207
  Serious: Yes (Life-Threatening, Hospitalization, Other)
  Sender: FDA-Public Use
  Company Number: CA-KADMON PHARMACEUTICALS, LLC-KAD201512-004622

PATIENT
  Age: 54 Year
  Sex: Male
  Weight: 60.32 kg

DRUGS (13)
  1. METHOTRIMEPRAZINE [Concomitant]
     Active Substance: LEVOMEPROMAZINE
     Dates: start: 201604
  2. FLUTICASONE PROPIONATE. [Concomitant]
     Active Substance: FLUTICASONE PROPIONATE
     Indication: DYSPNOEA
  3. TESTOSTERONE. [Concomitant]
     Active Substance: TESTOSTERONE
     Indication: FATIGUE
  4. RIBAVIRIN. [Suspect]
     Active Substance: RIBAVIRIN
     Indication: CHRONIC HEPATITIS C
     Dosage: TABLET, 400 MG IN AM (MORNING) AND 600 MG IN PM (EVENING) (TWO IN ONE DAY)
     Route: 048
     Dates: start: 20151120, end: 20160212
  5. NICOTINE. [Concomitant]
     Active Substance: NICOTINE
     Dates: start: 201603
  6. ATENOLOL. [Concomitant]
     Active Substance: ATENOLOL
     Dates: start: 201604
  7. METFORMIN [Concomitant]
     Active Substance: METFORMIN HYDROCHLORIDE
     Indication: DIABETES MELLITUS
     Route: 048
  8. VITAMIN B12 [Concomitant]
     Active Substance: CYANOCOBALAMIN
     Indication: FATIGUE
  9. IMODIUM [Concomitant]
     Active Substance: LOPERAMIDE HYDROCHLORIDE
     Indication: DIARRHOEA
     Route: 048
     Dates: start: 20151204, end: 20151204
  10. TYLENOL W/ CODEINE NO. 3 (PANADEINE CO) [Concomitant]
     Indication: BACK PAIN
     Route: 048
  11. SALBUTAMOL SULFATE [Concomitant]
     Active Substance: ALBUTEROL SULFATE
     Indication: DYSPNOEA
  12. HOLKIRA PAK [Suspect]
     Active Substance: DASABUVIR\OMBITASVIR\PARITAPREVIR\RITONAVIR
     Indication: CHRONIC HEPATITIS C
     Dosage: TWO 12.5/75/50 MG TABLETS ONCE DAILY AND ONE DASABUVIR 250 MG TABLET TWICE DAILY
     Route: 048
     Dates: start: 20151120, end: 20160212
  13. CLONAZEPAM. [Concomitant]
     Active Substance: CLONAZEPAM
     Indication: ANXIETY
     Route: 048

REACTIONS (14)
  - Optic ischaemic neuropathy [Recovering/Resolving]
  - Skin lesion [Unknown]
  - Vascular graft [Recovered/Resolved]
  - Tinea pedis [Unknown]
  - Blindness unilateral [Recovering/Resolving]
  - Acute myocardial infarction [Recovering/Resolving]
  - Cellulitis [Unknown]
  - Atrial fibrillation [Unknown]
  - Headache [Unknown]
  - Diarrhoea [Recovered/Resolved]
  - Asthenia [Unknown]
  - Pleural effusion [Unknown]
  - Syncope [Recovering/Resolving]
  - Fatigue [Unknown]

NARRATIVE: CASE EVENT DATE: 20151120
